FAERS Safety Report 8219742-5 (Version None)
Quarter: 2012Q1

REPORT INFORMATION
  Report Type: 
  Country: None (occurrence: None)
  Receive Date: 20120319
  Receipt Date: 20120308
  Transmission Date: 20120608
  Serious: Yes (Other)
  Sender: FDA-Public Use
  Company Number: NL-FRI-1000029121

PATIENT
  Age: 83 Year
  Sex: Male

DRUGS (2)
  1. MEMANTINE [Suspect]
     Indication: DEMENTIA ALZHEIMER'S TYPE
     Dosage: 10 MG
     Route: 048
  2. MEMANTINE [Suspect]
     Indication: BEHAVIOURAL AND PSYCHIATRIC SYMPTOMS OF DEMENTIA
     Dosage: 20 MG
     Route: 048

REACTIONS (3)
  - URINARY RETENTION [None]
  - CONSTIPATION [None]
  - CYSTITIS [None]
